FAERS Safety Report 20027167 (Version 4)
Quarter: 2021Q4

REPORT INFORMATION
  Report Type: Report from Study
  Country: BG (occurrence: BG)
  Receive Date: 20211103
  Receipt Date: 20211221
  Transmission Date: 20220303
  Serious: Yes (Hospitalization, Other)
  Sender: FDA-Public Use
  Company Number: BG-ABBVIE-21K-022-4143568-00

PATIENT
  Age: 70 Year
  Sex: Male

DRUGS (2)
  1. HUMIRA [Suspect]
     Active Substance: ADALIMUMAB
     Indication: Psoriasis
     Route: 058
     Dates: start: 201511, end: 202108
  2. SKYRIZI [Concomitant]
     Active Substance: RISANKIZUMAB-RZAA
     Indication: Product used for unknown indication

REACTIONS (2)
  - Urinary bladder polyp [Unknown]
  - Bladder transitional cell carcinoma [Unknown]
